FAERS Safety Report 25443560 (Version 1)
Quarter: 2025Q2

REPORT INFORMATION
  Report Type: Report from Study
  Country: US (occurrence: US)
  Receive Date: 20250617
  Receipt Date: 20250617
  Transmission Date: 20250716
  Serious: Yes (Other)
  Sender: GILEAD
  Company Number: US-GILEAD-2025-0716917

PATIENT
  Age: 74 Year
  Sex: Female

DRUGS (12)
  1. AZTREONAM LYSINE [Suspect]
     Active Substance: AZTREONAM LYSINE
     Indication: Cystic fibrosis
     Dosage: 75 MG (INHALE THE CONTENTS OF 1 VIAL VIA PARI ALTERA NEBULIZER 3 TIMES A DAY FOR 28 DAYS ON AND 28 D
     Route: 055
     Dates: start: 20250423
  2. TRIKAFTA [Concomitant]
     Active Substance: ELEXACAFTOR\IVACAFTOR\TEZACAFTOR
  3. ALPRAZOLAM [Concomitant]
     Active Substance: ALPRAZOLAM
  4. AMBIEN CR [Concomitant]
     Active Substance: ZOLPIDEM TARTRATE
  5. LEVOFLOXACIN [Concomitant]
     Active Substance: LEVOFLOXACIN
  6. MAGNESIUM GLUCONATE [Concomitant]
     Active Substance: MAGNESIUM GLUCONATE
  7. VITAMINS [Concomitant]
     Active Substance: VITAMINS
  8. LEVALBUTEROL [Concomitant]
     Active Substance: LEVALBUTEROL
  9. CALCIUM [Concomitant]
     Active Substance: CALCIUM
  10. XANAX [Concomitant]
     Active Substance: ALPRAZOLAM
  11. VITAMIN C [Concomitant]
     Active Substance: ASCORBIC ACID
  12. IMVEXXY [Concomitant]
     Active Substance: ESTRADIOL

REACTIONS (7)
  - Cystic fibrosis [Unknown]
  - Cough [Unknown]
  - Respiratory tract congestion [Unknown]
  - Fatigue [Unknown]
  - Sleep disorder [Unknown]
  - Loss of personal independence in daily activities [Unknown]
  - Product dose omission issue [Unknown]
